FAERS Safety Report 10329027 (Version 1)
Quarter: 2014Q3

REPORT INFORMATION
  Report Type: Spontaneous
  Country: US (occurrence: None)
  Receive Date: 20140718
  Receipt Date: 20140718
  Transmission Date: 20150326
  Serious: No
  Sender: FDA-Public Use
  Company Number: None

PATIENT
  Age: 72 Year
  Sex: Female
  Weight: 86 kg

DRUGS (30)
  1. XOLAIR [Suspect]
     Active Substance: OMALIZUMAB
     Indication: ASTHMA
     Dosage: 150 MG EVERY 4 WEEKS SUBCUTANEOUS
     Route: 058
     Dates: start: 20140623, end: 20140623
  2. OMEPRAZOLE. [Concomitant]
     Active Substance: OMEPRAZOLE
  3. NIACIN. [Concomitant]
     Active Substance: NIACIN
  4. KEFLEX [Concomitant]
     Active Substance: CEPHALEXIN
  5. CALCITONIN [Concomitant]
     Active Substance: CALCITONIN
  6. KLONOPIN [Concomitant]
     Active Substance: CLONAZEPAM
  7. MULTIVITAMIN [Concomitant]
     Active Substance: VITAMINS
  8. NITROGLYCERIN. [Concomitant]
     Active Substance: NITROGLYCERIN
  9. FEXOFENADINE [Concomitant]
     Active Substance: FEXOFENADINE\FEXOFENADINE HYDROCHLORIDE
  10. NUCYNTA [Concomitant]
     Active Substance: TAPENTADOL HYDROCHLORIDE
  11. ADVAIR DISKUS [Concomitant]
     Active Substance: FLUTICASONE PROPIONATE\SALMETEROL XINAFOATE
  12. LASIX [Concomitant]
     Active Substance: FUROSEMIDE
  13. ALBUTEROL. [Concomitant]
     Active Substance: ALBUTEROL
  14. GABAPENTIN. [Concomitant]
     Active Substance: GABAPENTIN
  15. MAGNESIUM OXIDE. [Concomitant]
     Active Substance: MAGNESIUM OXIDE
  16. MIRAPEX [Concomitant]
     Active Substance: PRAMIPEXOLE DIHYDROCHLORIDE
  17. LOSARTAN [Concomitant]
     Active Substance: LOSARTAN
  18. VENTOLIN HFA [Concomitant]
     Active Substance: ALBUTEROL SULFATE
  19. TUDORZA PRESSAIR [Concomitant]
     Active Substance: ACLIDINIUM BROMIDE
  20. FLUTICASONE [Concomitant]
     Active Substance: FLUTICASONE\FLUTICASONE PROPIONATE
  21. ASPIRIN. [Concomitant]
     Active Substance: ASPIRIN
  22. COENZYME Q10 [Concomitant]
     Active Substance: UBIDECARENONE
  23. CALCIUM VITAMIN D [Concomitant]
     Active Substance: CALCIUM\VITAMIN D
  24. FISH OIL [Concomitant]
     Active Substance: FISH OIL
  25. REGLAN [Concomitant]
     Active Substance: METOCLOPRAMIDE HYDROCHLORIDE
  26. EPIPEN [Concomitant]
     Active Substance: EPINEPHRINE
  27. XOLAIR [Concomitant]
     Active Substance: OMALIZUMAB
  28. THYROID DESICCATED [Concomitant]
  29. VITAMIN D3 [Concomitant]
     Active Substance: CHOLECALCIFEROL
  30. PREDNISONE. [Concomitant]
     Active Substance: PREDNISONE

REACTIONS (4)
  - Lip swelling [None]
  - Oesophageal spasm [None]
  - Peripheral swelling [None]
  - Pruritus [None]

NARRATIVE: CASE EVENT DATE: 20140623
